FAERS Safety Report 4871571-6 (Version None)
Quarter: 2005Q4

REPORT INFORMATION
  Report Type: 
  Country: None (occurrence: None)
  Receive Date: 20051230
  Receipt Date: 20051219
  Transmission Date: 20060501
  Serious: Yes (Hospitalization, Other)
  Sender: FDA-Public Use
  Company Number: DE-2005-002764

PATIENT
  Age: 46 Year
  Sex: Female

DRUGS (3)
  1. BETAFERON (INTERFERON BETA - 1B) INJECTION, 250UG [Suspect]
     Indication: MULTIPLE SCLEROSIS
     Dosage: 250UG, EVERY 2D, SUBCUTANEOUS
     Route: 058
     Dates: start: 20030101, end: 20051206
  2. BISOPROLOL FUMARATE [Concomitant]
  3. PANTOPRAZOLE SODIUM [Concomitant]

REACTIONS (11)
  - BLOOD PH INCREASED [None]
  - CORONARY ARTERY INSUFFICIENCY [None]
  - DYSPHAGIA [None]
  - HEART RATE INCREASED [None]
  - HYPERTENSION [None]
  - HYPERVENTILATION [None]
  - HYPOAESTHESIA ORAL [None]
  - MICROANGIOPATHY [None]
  - PAIN IN EXTREMITY [None]
  - PYREXIA [None]
  - TETANY [None]
